FAERS Safety Report 9778808 (Version 1)
Quarter: 2013Q4

REPORT INFORMATION
  Report Type: Spontaneous
  Country: US (occurrence: None)
  Receive Date: 20131220
  Receipt Date: 20131220
  Transmission Date: 20140711
  Serious: Yes (Other)
  Sender: FDA-Public Use
  Company Number: None

PATIENT
  Age: 100 Year
  Sex: Female

DRUGS (12)
  1. ISOSORBIDE MONONITRATE [Suspect]
     Indication: ANGINA PECTORIS
     Route: 048
     Dates: start: 20130607, end: 20131214
  2. AMLODIPINE [Concomitant]
  3. DEXAMETHASONE [Concomitant]
  4. DOCUSATE [Concomitant]
  5. EFFEXOR [Concomitant]
  6. FOLIC ACID [Concomitant]
  7. LASIX [Concomitant]
  8. LISINOPRIL [Concomitant]
  9. METOPROLOL [Concomitant]
  10. PLAVIX [Concomitant]
  11. PROTONIX [Concomitant]
  12. TRAMADOL [Concomitant]

REACTIONS (3)
  - Cyanosis [None]
  - Pain in extremity [None]
  - Peripheral vascular disorder [None]
